FAERS Safety Report 19674405 (Version 1)
Quarter: 2021Q3

REPORT INFORMATION
  Report Type: Spontaneous
  Country: US (occurrence: US)
  Receive Date: 20210809
  Receipt Date: 20210809
  Transmission Date: 20211014
  Serious: Yes (Other)
  Sender: FDA-Public Use
  Company Number: None

PATIENT
  Age: 30 Year
  Sex: Female
  Weight: 68 kg

DRUGS (5)
  1. BACTERIOSTATIC WATER [Concomitant]
     Active Substance: WATER
  2. FENOFIBRATE. [Concomitant]
     Active Substance: FENOFIBRATE
  3. MYALEPT [Suspect]
     Active Substance: METRELEPTIN
     Indication: LIPODYSTROPHY ACQUIRED
     Route: 058
  4. LISINOPRIL. [Concomitant]
     Active Substance: LISINOPRIL
  5. HUMULIN?R U?50 [Concomitant]

REACTIONS (1)
  - Therapy interrupted [None]
